FAERS Safety Report 9042097 (Version 1)
Quarter: 2013Q1

REPORT INFORMATION
  Report Type: Report from Study
  Country: US (occurrence: US)
  Receive Date: 20130129
  Receipt Date: 20130129
  Transmission Date: 20140127
  Serious: No
  Sender: FDA-Public Use
  Company Number: US-ABBOTT-12P-163-0905135-00

PATIENT
  Age: 63 Year
  Sex: Female

DRUGS (18)
  1. HUMIRA 40 MG/0.8 ML PEN [Suspect]
     Indication: RHEUMATOID ARTHRITIS
     Dates: start: 20120114
  2. JANUVIA [Concomitant]
     Indication: DIABETES MELLITUS
     Dosage: EVERY NIGHT
  3. METFORMIN [Concomitant]
     Indication: DIABETES MELLITUS
     Dosage: EVERY EVENING
  4. BENICAR [Concomitant]
     Indication: BLOOD PRESSURE
  5. LISINOPRIL [Concomitant]
     Indication: BLOOD PRESSURE
  6. NIFEDIAC [Concomitant]
     Indication: BLOOD PRESSURE
  7. LEVOTHYROXINE [Concomitant]
     Indication: HYPOTHYROIDISM
  8. PRAVASTATIN [Concomitant]
     Indication: BLOOD CHOLESTEROL
  9. LYRICA [Concomitant]
     Indication: PRODUCT USED FOR UNKNOWN INDICATION
  10. FISH OIL [Concomitant]
     Indication: BLOOD TRIGLYCERIDES
  11. KEPPRA [Concomitant]
     Indication: EPILEPSY
  12. OMEPRAZOLE [Concomitant]
     Indication: DYSPEPSIA
     Dosage: EVERY MORNING
  13. ASPIRIN [Concomitant]
     Indication: CEREBROVASCULAR ACCIDENT PROPHYLAXIS
     Dosage: EVERY NIGHT
  14. CENTRUM [Concomitant]
     Indication: PRODUCT USED FOR UNKNOWN INDICATION
  15. VITAMIN D [Concomitant]
     Indication: HYPOVITAMINOSIS
  16. B6 [Concomitant]
     Indication: PRODUCT USED FOR UNKNOWN INDICATION
  17. NOVOLOG [Concomitant]
     Indication: DIABETES MELLITUS MANAGEMENT
  18. LEVEMIR [Concomitant]
     Indication: DIABETES MELLITUS MANAGEMENT

REACTIONS (10)
  - Blood glucose increased [Not Recovered/Not Resolved]
  - Pyrexia [Not Recovered/Not Resolved]
  - Oropharyngeal pain [Not Recovered/Not Resolved]
  - Paranasal sinus hypersecretion [Not Recovered/Not Resolved]
  - Influenza like illness [Not Recovered/Not Resolved]
  - Sinusitis [Not Recovered/Not Resolved]
  - Rash papular [Unknown]
  - Rash papular [Unknown]
  - Erythema [Unknown]
  - Throat tightness [Unknown]
